FAERS Safety Report 9061518 (Version 3)
Quarter: 2013Q1

REPORT INFORMATION
  Report Type: Spontaneous
  Country: ES (occurrence: ES)
  Receive Date: 20130204
  Receipt Date: 20130319
  Transmission Date: 20140127
  Serious: Yes (Death, Hospitalization, Other)
  Sender: FDA-Public Use
  Company Number: ES-VERTEX PHARMACEUTICALS INC.-2013-001466

PATIENT
  Age: 64 None
  Sex: Female
  Weight: 70 kg

DRUGS (13)
  1. INCIVO [Suspect]
     Indication: CHRONIC HEPATITIS C
     Dosage: 2250 MG, QD
     Route: 048
     Dates: start: 20121008, end: 20121231
  2. RIBAVIRIN [Suspect]
     Indication: HEPATITIS C
     Dosage: DOSAGE FORM: UNSPECIFIED, DOSE REDUCED TO 800 MG DAILY ON AN UNSPECIFIED DATE AFTER 2 WEEKS OF THERP
     Route: 048
     Dates: start: 20121008, end: 20130108
  3. PEGINTERFERON ALFA [Suspect]
     Indication: HEPATITIS C
     Dosage: DOSAGE FORM: UNSPECIFIED
     Route: 058
     Dates: start: 20121008, end: 20130108
  4. LORAZEPAM [Concomitant]
     Indication: INSOMNIA
     Dosage: DOSAGE FORM: UNSPECIFIED
     Route: 048
     Dates: start: 20121023
  5. DESLORATADINE [Concomitant]
     Indication: PRURITUS
     Dosage: DOSAGE FORM: UNSPECIFIED
     Route: 048
     Dates: start: 20121121, end: 20130125
  6. DOMPERIDONE [Concomitant]
     Indication: NAUSEA
     Dosage: DOSAGE FORM: UNSPECIFIED
     Route: 048
     Dates: start: 20121023, end: 20130125
  7. DOMPERIDONE [Concomitant]
     Indication: ABDOMINAL PAIN UPPER
  8. DOMPERIDONE [Concomitant]
     Indication: PROPHYLAXIS
  9. NORFLOXACIN [Concomitant]
     Indication: PROPHYLAXIS
     Dosage: DOSAGE FORM: UNSPECIFIED
     Route: 048
     Dates: start: 20130108
  10. NORFLOXACIN [Concomitant]
     Indication: INFECTION
  11. METOCLOPRAMIDE [Concomitant]
     Indication: NAUSEA
     Dosage: DOSAGE FORM: UNSPECIFIED
     Route: 065
  12. OMEPRAZOLE [Concomitant]
     Indication: PROPHYLAXIS
     Dosage: DOSAGE FORM: UNSPECIFIED
     Route: 048
     Dates: start: 20120925
  13. OMEPRAZOLE [Concomitant]
     Indication: ABDOMINAL PAIN UPPER

REACTIONS (13)
  - Multi-organ failure [Fatal]
  - Septic shock [Fatal]
  - Hepatorenal syndrome [Fatal]
  - Hepatic failure [Not Recovered/Not Resolved]
  - Nosocomial infection [Recovered/Resolved]
  - Peritonitis bacterial [Recovered/Resolved]
  - Mouth ulceration [None]
  - Decreased appetite [Recovered/Resolved]
  - Nausea [Recovered/Resolved]
  - Pruritus generalised [Not Recovered/Not Resolved]
  - Anaemia [Not Recovered/Not Resolved]
  - Poor quality sleep [Unknown]
  - Haemorrhoids [Unknown]
